FAERS Safety Report 13657979 (Version 1)
Quarter: 2017Q2

REPORT INFORMATION
  Report Type: Report from Study
  Country: US (occurrence: US)
  Receive Date: 20170616
  Receipt Date: 20170616
  Transmission Date: 20170830
  Serious: Yes (Death, Hospitalization)
  Sender: FDA-Public Use
  Company Number: US-TORRENT-00002943

PATIENT
  Age: 23 Year
  Sex: Female

DRUGS (3)
  1. LEVETIRACETAM. [Suspect]
     Active Substance: LEVETIRACETAM
  2. PHENYTOIN. [Suspect]
     Active Substance: PHENYTOIN
  3. FENTANYL. [Suspect]
     Active Substance: FENTANYL

REACTIONS (1)
  - Toxicity to various agents [Fatal]
